FAERS Safety Report 20338479 (Version 1)
Quarter: 2022Q1

REPORT INFORMATION
  Report Type: Spontaneous
  Country: None (occurrence: A1)
  Receive Date: 20220115
  Receipt Date: 20220115
  Transmission Date: 20220424
  Serious: Yes (Hospitalization, Other)
  Sender: FDA-Public Use
  Company Number: A1-Acella Pharmaceuticals, LLC-2123970

PATIENT
  Age: 9 Year
  Sex: Female
  Weight: 26 kg

DRUGS (2)
  1. DOXYCYCLINE [Suspect]
     Active Substance: DOXYCYCLINE
     Indication: Pseudomonal bacteraemia
     Route: 065
  2. DOXYCYCLINE [Suspect]
     Active Substance: DOXYCYCLINE
     Indication: Brucellosis

REACTIONS (17)
  - Liver injury [Unknown]
  - Pyrexia [Unknown]
  - Jaundice [Unknown]
  - Anaemia [Unknown]
  - Chills [Unknown]
  - Yellow skin [Unknown]
  - Chromaturia [Unknown]
  - Abdominal pain upper [Unknown]
  - Illness [Unknown]
  - Fatigue [Unknown]
  - Ocular icterus [Unknown]
  - Pallor [Unknown]
  - Hepatomegaly [Unknown]
  - Splenomegaly [Unknown]
  - Ascites [Unknown]
  - Hepatic function abnormal [Unknown]
  - Hepatic cirrhosis [Unknown]
